FAERS Safety Report 9753589 (Version 3)
Quarter: 2016Q4

REPORT INFORMATION
  Report Type: Spontaneous
  Country: GB (occurrence: GB)
  Receive Date: 20131213
  Receipt Date: 20161006
  Transmission Date: 20170207
  Serious: Yes (Other)
  Sender: FDA-Public Use
  Company Number: PHHY2013GB144012

PATIENT
  Age: 62 Year
  Sex: Male
  Weight: 85 kg

DRUGS (2)
  1. TEGRETOL [Suspect]
     Active Substance: CARBAMAZEPINE
     Indication: CEREBRAL DISORDER
     Dosage: 200 MG, BID
     Route: 048
     Dates: start: 1994
  2. TEGRETOL [Suspect]
     Active Substance: CARBAMAZEPINE
     Indication: EPILEPSY

REACTIONS (7)
  - Blood urine present [Unknown]
  - Osteoporosis [Recovering/Resolving]
  - Oedema [Unknown]
  - Prostate cancer [Unknown]
  - Haematospermia [Unknown]
  - Product use issue [Unknown]
  - Gastrointestinal stromal tumour [Unknown]

NARRATIVE: CASE EVENT DATE: 1994
